FAERS Safety Report 9491766 (Version 1)
Quarter: 2013Q3

REPORT INFORMATION
  Report Type: Not Available
  Country: US (occurrence: US)
  Receive Date: 20130919
  Receipt Date: 20130919
  Transmission Date: 20140515
  Serious: Yes (Other)
  Sender: FDA-Public Use
  Company Number: US-LUNDBECK-DKLU1082970

PATIENT
  Sex: Male

DRUGS (2)
  1. SABRIL (TABLET) [Suspect]
     Indication: INFANTILE SPASMS
     Dosage: 1.5 TABLETS
     Dates: start: 20120402, end: 20120602
  2. TOPAMAX [Concomitant]
     Indication: PRODUCT USED FOR UNKNOWN INDICATION

REACTIONS (2)
  - Convulsion [Unknown]
  - Drug ineffective [Unknown]
